FAERS Safety Report 7669736-3 (Version None)
Quarter: 2011Q3

REPORT INFORMATION
  Report Type: 
  Country: None (occurrence: None)
  Receive Date: 20110808
  Receipt Date: 20110801
  Transmission Date: 20111222
  Serious: Yes (Other)
  Sender: FDA-Public Use
  Company Number: CA-PFIZER INC-2011158403

PATIENT
  Age: 83 Year
  Sex: Male

DRUGS (3)
  1. XALATAN [Suspect]
     Dosage: 1 GTT IN BOTH EYES, 1X/DAY
     Route: 047
     Dates: start: 20110701
  2. XALATAN [Suspect]
     Indication: GLAUCOMA
     Dosage: 1 GTT IN BOTH EYES, 2X/DAY
     Route: 047
     Dates: start: 20110101, end: 20110701
  3. METOPROLOL SUCCINATE [Concomitant]
     Indication: CARDIAC DISORDER
     Dosage: UNK

REACTIONS (6)
  - VISUAL ACUITY REDUCED [None]
  - BLINDNESS [None]
  - DIZZINESS [None]
  - EYE INFECTION BACTERIAL [None]
  - VISION BLURRED [None]
  - EYELID OEDEMA [None]
